FAERS Safety Report 14195553 (Version 1)
Quarter: 2017Q4

REPORT INFORMATION
  Report Type: Spontaneous
  Country: GB (occurrence: GB)
  Receive Date: 20171116
  Receipt Date: 20171116
  Transmission Date: 20180321
  Serious: Yes (Hospitalization)
  Sender: FDA-Public Use
  Company Number: GB-EXELIXIS-CABO-17011215

PATIENT
  Age: 73 Year
  Sex: Female

DRUGS (3)
  1. CABOMETYX [Suspect]
     Active Substance: CABOZANTINIB S-MALATE
     Indication: METASTATIC RENAL CELL CARCINOMA
     Dosage: 60 MG, QD
     Route: 048
     Dates: start: 201709, end: 201709
  2. RAMIPRIL. [Concomitant]
     Active Substance: RAMIPRIL
  3. OMEPRAZOLE. [Concomitant]
     Active Substance: OMEPRAZOLE

REACTIONS (12)
  - Hyperkalaemia [Unknown]
  - General physical health deterioration [Unknown]
  - Lower respiratory tract infection [Unknown]
  - Blood albumin decreased [Unknown]
  - Pain in extremity [Unknown]
  - Metastases to bone [Unknown]
  - Diarrhoea [Unknown]
  - Hyponatraemia [Unknown]
  - Malignant neoplasm progression [Unknown]
  - Musculoskeletal chest pain [Unknown]
  - Dehydration [Unknown]
  - Hypercalcaemia [Unknown]

NARRATIVE: CASE EVENT DATE: 201709
